FAERS Safety Report 6135985-9 (Version None)
Quarter: 2009Q1

REPORT INFORMATION
  Report Type: 
  Country: None (occurrence: None)
  Receive Date: 20090329
  Receipt Date: 20081120
  Transmission Date: 20090719
  Serious: No
  Sender: FDA-Public Use
  Company Number: US-BAUSCH-2008BL004894

PATIENT
  Age: 63 Year
  Sex: Female
  Weight: 63 kg

DRUGS (3)
  1. LOTEMAX [Suspect]
     Indication: POSTOPERATIVE CARE
     Route: 047
     Dates: start: 20071101
  2. ZYRTEC [Concomitant]
     Indication: SEASONAL ALLERGY
     Route: 048
  3. RESTASIS [Concomitant]
     Indication: KERATOCONJUNCTIVITIS SICCA
     Route: 047
     Dates: start: 20050101

REACTIONS (3)
  - ABNORMAL SENSATION IN EYE [None]
  - CONJUNCTIVAL HAEMORRHAGE [None]
  - EYE IRRITATION [None]
